FAERS Safety Report 8921062 (Version 1)
Quarter: 2012Q4

REPORT INFORMATION
  Report Type: 
  Country: DE (occurrence: IT)
  Receive Date: 20121121
  Receipt Date: 20121121
  Transmission Date: 20130627
  Serious: Yes (Hospitalization)
  Sender: FDA-Public Use
  Company Number: IT-FRI-1000040584

PATIENT
  Age: 68 Year
  Sex: Male

DRUGS (7)
  1. ROFLUMILAST [Suspect]
     Indication: BRONCHIAL DISORDER
     Dosage: 500 mcg
     Route: 048
     Dates: start: 20121012, end: 20121112
  2. FLANTADIN [Concomitant]
     Route: 048
  3. SPIRIVA RESPIMAT [Concomitant]
     Route: 055
  4. OPTINATE [Concomitant]
  5. ALIFLUS [Concomitant]
     Dosage: 25/250 mcg
     Route: 055
  6. LERCADIP [Concomitant]
     Route: 048
  7. ZADITEN [Concomitant]
     Route: 048

REACTIONS (4)
  - Abdominal pain [Recovered/Resolved]
  - Back pain [Recovered/Resolved]
  - Gastritis [Recovered/Resolved]
  - Haematochezia [Recovered/Resolved]
